FAERS Safety Report 7080903-2 (Version None)
Quarter: 2010Q4

REPORT INFORMATION
  Report Type: 
  Country: None (occurrence: None)
  Receive Date: 20101103
  Receipt Date: 20101102
  Transmission Date: 20110411
  Serious: Yes (Hospitalization)
  Sender: FDA-Public Use
  Company Number: FR-SANOFI-AVENTIS-2010SA066495

PATIENT
  Age: 85 Year
  Sex: Female

DRUGS (2)
  1. STILNOX [Suspect]
     Indication: INSOMNIA
     Route: 048
     Dates: end: 20100906
  2. STILNOX [Suspect]
     Route: 048
     Dates: start: 20100907

REACTIONS (5)
  - FALL [None]
  - FRACTURE [None]
  - INTERVERTEBRAL DISC COMPRESSION [None]
  - OVERDOSE [None]
  - SOMNOLENCE [None]
